FAERS Safety Report 26013954 (Version 1)
Quarter: 2025Q4

REPORT INFORMATION
  Report Type: Spontaneous
  Country: US (occurrence: US)
  Receive Date: 20251108
  Receipt Date: 20251108
  Transmission Date: 20260118
  Serious: No
  Sender: SANOFI AVENTIS
  Company Number: US-SA-2025SA327553

PATIENT
  Sex: Female

DRUGS (1)
  1. DUPIXENT [Suspect]
     Active Substance: DUPILUMAB
     Indication: Eosinophilic oesophagitis
     Dosage: 300 MG, QOW
     Route: 058
     Dates: start: 202305

REACTIONS (7)
  - Palpitations [Unknown]
  - Heart rate increased [Unknown]
  - Skin reaction [Unknown]
  - Eczema [Unknown]
  - Cardiac disorder [Unknown]
  - Contusion [Unknown]
  - Urticaria [Unknown]
